FAERS Safety Report 5266807-6 (Version None)
Quarter: 2007Q1

REPORT INFORMATION
  Report Type: 
  Country: None (occurrence: None)
  Receive Date: 20061213
  Receipt Date: 20030415
  Transmission Date: 20070707
  Serious: Yes (Hospitalization)
  Sender: FDA-Public Use
  Company Number: 2002UW15631

PATIENT
  Age: 74 Year
  Sex: Female

DRUGS (10)
  1. NOLVADEX [Suspect]
     Indication: BREAST CANCER
     Dosage: 20 MG DAILY PO
     Route: 048
     Dates: start: 20010425, end: 20021106
  2. ASPIRIN [Concomitant]
  3. VITAMIN E [Concomitant]
  4. MONOPRIL [Concomitant]
  5. ALLEGRA [Concomitant]
  6. COLACE [Concomitant]
  7. QUESTRAN [Concomitant]
  8. IRON [Concomitant]
  9. DARVOCET-N 100 [Concomitant]
  10. NEXIUM [Concomitant]

REACTIONS (1)
  - PULMONARY EMBOLISM [None]
